FAERS Safety Report 11108906 (Version 1)
Quarter: 2015Q2

REPORT INFORMATION
  Report Type: Spontaneous
  Country: US (occurrence: None)
  Receive Date: 20150511
  Receipt Date: 20150511
  Transmission Date: 20150821
  Serious: Yes (Other)
  Sender: FDA-Public Use
  Company Number: None

PATIENT
  Age: 61 Year
  Sex: Female
  Weight: 51.71 kg

DRUGS (4)
  1. MULTIPLE VITAMINS [Concomitant]
     Active Substance: VITAMINS
  2. VITAMIN B12 [Concomitant]
     Active Substance: CYANOCOBALAMIN
  3. FLUOXETINE [Concomitant]
     Active Substance: FLUOXETINE\FLUOXETINE HYDROCHLORIDE
  4. ACETAZOLAMIDE. [Suspect]
     Active Substance: ACETAZOLAMIDE
     Indication: INTRAOCULAR PRESSURE INCREASED
     Dosage: 2 PILLS/3 DOSES, 6 PILLS TOTAL, TAKEN BY MOUTH
     Route: 048
     Dates: start: 20150430, end: 20150501

REACTIONS (5)
  - Nausea [None]
  - Tremor [None]
  - Paraesthesia [None]
  - Vomiting [None]
  - Hand deformity [None]

NARRATIVE: CASE EVENT DATE: 20150430
